FAERS Safety Report 9894283 (Version 1)
Quarter: 2014Q1

REPORT INFORMATION
  Report Type: Spontaneous
  Country: FR (occurrence: FR)
  Receive Date: 20140213
  Receipt Date: 20140213
  Transmission Date: 20141002
  Serious: Yes (Life-Threatening, Hospitalization)
  Sender: FDA-Public Use
  Company Number: FR-GLAXOSMITHKLINE-B0966061A

PATIENT
  Age: 39 Year
  Sex: Male

DRUGS (3)
  1. ZINNAT [Suspect]
     Indication: OROPHARYNGEAL PAIN
     Route: 048
     Dates: start: 20000417, end: 20000419
  2. RULID [Suspect]
     Indication: PHARYNGITIS
     Route: 048
     Dates: start: 20000417, end: 20000419
  3. SOLUPRED [Suspect]
     Indication: PHARYNGITIS
     Route: 048
     Dates: start: 20000417, end: 20000419

REACTIONS (1)
  - Cellulitis [Recovered/Resolved]
